FAERS Safety Report 18095926 (Version 1)
Quarter: 2020Q3

REPORT INFORMATION
  Report Type: Spontaneous
  Country: CH (occurrence: CH)
  Receive Date: 20200731
  Receipt Date: 20200731
  Transmission Date: 20201103
  Serious: Yes (Other)
  Sender: FDA-Public Use
  Company Number: CH-PFIZER INC-2020286484

PATIENT
  Age: 88 Year
  Sex: Male

DRUGS (8)
  1. REMERON [Interacting]
     Active Substance: MIRTAZAPINE
     Dosage: 30 MG, DAILY (0?0?1)
     Route: 048
     Dates: start: 20200601
  2. ATORVASTATIN [Concomitant]
     Active Substance: ATORVASTATIN
     Dosage: UNK
  3. VENLAFAXINE [Suspect]
     Active Substance: VENLAFAXINE HYDROCHLORIDE
     Dosage: 150 MG, 1X/DAY(1?0?0)
     Route: 048
  4. ADENURIC [Concomitant]
     Active Substance: FEBUXOSTAT
     Dosage: UNK
  5. ELIQUIS [Concomitant]
     Active Substance: APIXABAN
     Dosage: UNK
  6. ACETYLSALICYLIC ACID [Concomitant]
     Active Substance: ASPIRIN
     Dosage: UNK
  7. REMERON [Interacting]
     Active Substance: MIRTAZAPINE
     Dosage: 15 MG, DAILY (0?0?0.5)
     Route: 048
     Dates: end: 20200531
  8. ESOMEPRAZOLE. [Concomitant]
     Active Substance: ESOMEPRAZOLE MAGNESIUM
     Dosage: UNK

REACTIONS (2)
  - Inappropriate antidiuretic hormone secretion [Recovering/Resolving]
  - Potentiating drug interaction [Recovering/Resolving]

NARRATIVE: CASE EVENT DATE: 20200602
